FAERS Safety Report 24809693 (Version 1)
Quarter: 2025Q1

REPORT INFORMATION
  Report Type: Report from Study
  Country: US (occurrence: US)
  Receive Date: 20250106
  Receipt Date: 20250106
  Transmission Date: 20250409
  Serious: Yes (Hospitalization)
  Sender: GILEAD
  Company Number: US-GILEAD-2025-0698737

PATIENT
  Sex: Male

DRUGS (10)
  1. AZTREONAM LYSINE [Suspect]
     Active Substance: AZTREONAM LYSINE
     Indication: Cystic fibrosis lung
     Dosage: 75 MG, TID, 75 MG VIA ALTERA NEBULIZER 3 TIMES DAILY FOR ONE MONTH ON
     Route: 055
  2. HUMALOG [Concomitant]
     Active Substance: INSULIN LISPRO
  3. CREON [Concomitant]
     Active Substance: PANCRELIPASE AMYLASE\PANCRELIPASE LIPASE\PANCRELIPASE PROTEASE
  4. FLUTICASONE PROPIONATE [Concomitant]
     Active Substance: FLUTICASONE PROPIONATE
  5. TOBI [Concomitant]
     Active Substance: TOBRAMYCIN
  6. LANTUS [Concomitant]
     Active Substance: INSULIN GLARGINE
  7. FAMOTIDINE [Concomitant]
     Active Substance: FAMOTIDINE
  8. ADVAIR HFA [Concomitant]
     Active Substance: FLUTICASONE PROPIONATE\SALMETEROL XINAFOATE
  9. URSODIOL [Concomitant]
     Active Substance: URSODIOL
  10. PULMOZYME [Concomitant]
     Active Substance: DORNASE ALFA

REACTIONS (1)
  - Blood glucose decreased [Unknown]
